FAERS Safety Report 5135932-2 (Version None)
Quarter: 2006Q4

REPORT INFORMATION
  Report Type: 
  Country: None (occurrence: None)
  Receive Date: 20061019
  Receipt Date: 20061013
  Transmission Date: 20070319
  Serious: Yes (Other)
  Sender: FDA-Public Use
  Company Number: GBWYE114104OCT06

PATIENT
  Age: 56 Year
  Sex: Female

DRUGS (8)
  1. EFFEXOR XR [Suspect]
     Indication: DEPRESSION
     Dosage: 150 MG 1X PER 1 DAY ORAL; SEE IMAGE
     Route: 048
     Dates: end: 20060101
  2. EFFEXOR XR [Suspect]
     Indication: DEPRESSION
     Dosage: 150 MG 1X PER 1 DAY ORAL; SEE IMAGE
     Route: 048
     Dates: start: 20060725
  3. LITHIUM CARBONATE [Concomitant]
  4. TRIFLUOPERAZINE HCL [Concomitant]
  5. TEMAZEPAM [Concomitant]
  6. THYROXINE I 125 (THYROXINE I 125) [Concomitant]
  7. DIHYDROCODEINE (DIHYDROCODEINE) [Concomitant]
  8. ATORVASTATIN CALCIUM [Concomitant]

REACTIONS (4)
  - CONTUSION [None]
  - DROP ATTACKS [None]
  - LOSS OF CONSCIOUSNESS [None]
  - SYNCOPE [None]
